FAERS Safety Report 5619168-4 (Version None)
Quarter: 2008Q1

REPORT INFORMATION
  Report Type: 
  Country: None (occurrence: None)
  Receive Date: 20080207
  Receipt Date: 20080128
  Transmission Date: 20080703
  Serious: Yes (Hospitalization, Other)
  Sender: FDA-Public Use
  Company Number: FR-ABBOTT-08P-056-0435414-00

PATIENT
  Sex: Female

DRUGS (6)
  1. KALETRA [Suspect]
     Indication: DRUG EXPOSURE DURING PREGNANCY
     Route: 048
  2. TENOFOVIR DISOPROXIL FUMARATE [Suspect]
     Indication: DRUG EXPOSURE DURING PREGNANCY
     Route: 048
  3. ZIDOVUDINE [Suspect]
     Indication: PROPHYLAXIS AGAINST HIV INFECTION
     Route: 048
     Dates: end: 20041005
  4. ZIDOVUDINE [Suspect]
  5. NELFINAVIR MESILATE [Suspect]
     Indication: DRUG EXPOSURE DURING PREGNANCY
  6. LAMIVUDINE + ZIDOVUDINE [Suspect]
     Indication: DRUG EXPOSURE DURING PREGNANCY
     Route: 048

REACTIONS (2)
  - ANAEMIA [None]
  - GLYCOGEN STORAGE DISEASE TYPE I [None]
